FAERS Safety Report 4680863-5 (Version None)
Quarter: 2005Q2

REPORT INFORMATION
  Report Type: 
  Country: None (occurrence: None)
  Receive Date: 20050531
  Receipt Date: 20050531
  Transmission Date: 20051028
  Serious: Yes (Hospitalization)
  Sender: FDA-Public Use
  Company Number: None

PATIENT
  Sex: Female
  Weight: 124.7392 kg

DRUGS (1)
  1. NIFEDIPINE [Suspect]
     Indication: HYPERTENSION
     Dosage: 30 MG/T PO QD PO
     Route: 048

REACTIONS (2)
  - ABDOMINAL DISCOMFORT [None]
  - DRUG INTOLERANCE [None]
